FAERS Safety Report 8532319-7 (Version None)
Quarter: 2012Q3

REPORT INFORMATION
  Report Type: 
  Country: None (occurrence: None)
  Receive Date: 20120724
  Receipt Date: 20120716
  Transmission Date: 20120928
  Serious: Yes (Hospitalization)
  Sender: FDA-Public Use
  Company Number: US-BIOGENIDEC-2011BI001945

PATIENT
  Age: 52 Year
  Sex: Male

DRUGS (2)
  1. TYSABRI [Suspect]
     Indication: MULTIPLE SCLEROSIS
     Route: 042
     Dates: start: 20091007
  2. SEROQUEL [Concomitant]

REACTIONS (8)
  - PARESIS [None]
  - URINARY INCONTINENCE [None]
  - FEELING ABNORMAL [None]
  - KLEBSIELLA INFECTION [None]
  - ASTHENOPIA [None]
  - PYREXIA [None]
  - MUSCLE SPASMS [None]
  - BLOOD URINE PRESENT [None]
